FAERS Safety Report 7597829-8 (Version None)
Quarter: 2011Q3

REPORT INFORMATION
  Report Type: 
  Country: None (occurrence: None)
  Receive Date: 20110708
  Receipt Date: 20110630
  Transmission Date: 20111222
  Serious: Yes (Death, Hospitalization, Other)
  Sender: FDA-Public Use
  Company Number: JP-CEPHALON-2011001164

PATIENT
  Sex: Male
  Weight: 62 kg

DRUGS (4)
  1. RED BLOOD CELLS [Concomitant]
     Dates: start: 20110304, end: 20110414
  2. LENOGRASTIM [Concomitant]
     Dates: start: 20110305, end: 20110401
  3. PLATELETS [Concomitant]
     Dates: start: 20110314, end: 20110414
  4. BENDAMUSTINE HCL [Suspect]
     Indication: B-CELL LYMPHOMA
     Route: 042
     Dates: start: 20110302, end: 20110417

REACTIONS (6)
  - INFECTION [None]
  - RENAL IMPAIRMENT [None]
  - PANCREATITIS ACUTE [None]
  - WHITE BLOOD CELL COUNT DECREASED [None]
  - TUMOUR LYSIS SYNDROME [None]
  - SEPTIC SHOCK [None]
